FAERS Safety Report 13853361 (Version 2)
Quarter: 2017Q4

REPORT INFORMATION
  Report Type: Spontaneous
  Country: IT (occurrence: IT)
  Receive Date: 20170809
  Receipt Date: 20171017
  Transmission Date: 20180320
  Serious: Yes (Hospitalization)
  Sender: FDA-Public Use
  Company Number: IT-MALLINCKRODT-T201703352

PATIENT
  Age: 39 Year
  Sex: Female
  Weight: 47 kg

DRUGS (4)
  1. CERITINIB [Suspect]
     Active Substance: CERITINIB
     Indication: OVARIAN CANCER
     Dosage: 750 MG, 1 IN 1 DAY
     Route: 048
     Dates: start: 20170615, end: 20170616
  2. CERITINIB [Suspect]
     Active Substance: CERITINIB
     Dosage: UNK
     Route: 048
     Dates: start: 20170618
  3. FENTANYL TRANSDERMAL SYSTEM [Suspect]
     Active Substance: FENTANYL
     Indication: ABDOMINAL PAIN
     Dosage: 50 UG/HR, 1 IN 72 HOUR
     Route: 065
     Dates: start: 201704, end: 20170616
  4. HYDROMORPHONE HYDROCHLORIDE. [Suspect]
     Active Substance: HYDROMORPHONE HYDROCHLORIDE
     Indication: ABDOMINAL PAIN
     Dosage: UNK
     Route: 048
     Dates: start: 20170616

REACTIONS (1)
  - Intestinal obstruction [Recovered/Resolved]

NARRATIVE: CASE EVENT DATE: 20170616
